FAERS Safety Report 6534350-X (Version None)
Quarter: 2010Q1

REPORT INFORMATION
  Report Type: 
  Country: None (occurrence: None)
  Receive Date: 20100108
  Receipt Date: 20100108
  Transmission Date: 20100710
  Serious: No
  Sender: FDA-Public Use
  Company Number: None

PATIENT
  Age: 56 Year
  Sex: Female
  Weight: 70.3075 kg

DRUGS (2)
  1. BONIVA [Suspect]
     Indication: OSTEOPENIA
     Dosage: 60 MG 1 PO
     Route: 048
     Dates: start: 20050313, end: 20091106
  2. BOTOX [Concomitant]

REACTIONS (4)
  - ANGER [None]
  - BLEPHAROSPASM [None]
  - IMMOBILE [None]
  - IMPAIRED WORK ABILITY [None]
